FAERS Safety Report 5274548-4 (Version None)
Quarter: 2007Q1

REPORT INFORMATION
  Report Type: 
  Country: None (occurrence: None)
  Receive Date: 20070320
  Receipt Date: 20070306
  Transmission Date: 20070707
  Serious: Yes (Hospitalization)
  Sender: FDA-Public Use
  Company Number: 2007AL000926

PATIENT
  Age: 69 Year
  Sex: Male

DRUGS (3)
  1. METFORMIN HYDROCHLORIDE [Suspect]
     Indication: DIABETES MELLITUS NON-INSULIN-DEPENDENT
  2. LOSARTAN POSTASSIUM [Concomitant]
  3. HYDROCHLOROTHIAZIDE [Concomitant]

REACTIONS (16)
  - ABDOMINAL PAIN [None]
  - BASE EXCESS NEGATIVE [None]
  - BLOOD CREATININE INCREASED [None]
  - BLOOD GLUCOSE INCREASED [None]
  - BLOOD LACTIC ACID DECREASED [None]
  - BLOOD PH DECREASED [None]
  - BLOOD POTASSIUM INCREASED [None]
  - BODY TEMPERATURE DECREASED [None]
  - CARDIAC ARREST [None]
  - DIARRHOEA [None]
  - HYPERVENTILATION [None]
  - LABORATORY TEST ABNORMAL [None]
  - NEPHROLITHIASIS [None]
  - RESPIRATORY ARREST [None]
  - URETERIC OBSTRUCTION [None]
  - VISUAL DISTURBANCE [None]
